FAERS Safety Report 11216524 (Version 1)
Quarter: 2015Q2

REPORT INFORMATION
  Report Type: Spontaneous
  Country: None (occurrence: None)
  Receive Date: 20150623
  Receipt Date: 20150623
  Transmission Date: 20150821
  Serious: Yes (Other)
  Sender: FDA-Public Use
  Company Number: None

PATIENT
  Age: 26 Year
  Sex: Female

DRUGS (1)
  1. NEXPLANON [Suspect]
     Active Substance: ETONOGESTREL

REACTIONS (5)
  - Abortion spontaneous [None]
  - Maternal exposure during pregnancy [None]
  - Haemorrhage [None]
  - Vaginal haemorrhage [None]
  - Maternal drugs affecting foetus [None]
